FAERS Safety Report 9412588 (Version 1)
Quarter: 2013Q3

REPORT INFORMATION
  Report Type: Spontaneous
  Country: US (occurrence: US)
  Receive Date: 20130722
  Receipt Date: 20130722
  Transmission Date: 20140515
  Serious: Yes (Death, Hospitalization, Other)
  Sender: FDA-Public Use
  Company Number: US-BAYER-2013-086212

PATIENT
  Age: 96 Year
  Sex: Female
  Weight: 61 kg

DRUGS (7)
  1. BAYER ASPIRIN REGIMEN ADULT LOW STRENGTH [Suspect]
     Dosage: 81 MG, QD
  2. LASIX [Suspect]
     Dosage: 20 MG, UNK
  3. LASIX [Suspect]
     Dosage: 40 MG IN THE MORNING AND 20 MG IN THE NIGHT
     Dates: start: 200706
  4. LASIX [Suspect]
     Dosage: 20 MG, DAILY
     Dates: start: 2011
  5. LISINOPRIL [Suspect]
     Dosage: 20 MG, QD
     Dates: end: 201111
  6. COUMADIN [Suspect]
     Dosage: 5 MG, QD
  7. REVATIO [Suspect]
     Dosage: 20 MG, TID
     Route: 048
     Dates: start: 201111

REACTIONS (10)
  - Renal failure chronic [Not Recovered/Not Resolved]
  - Renal disorder [Fatal]
  - Renal impairment [Unknown]
  - Haemorrhage [None]
  - Haemorrhage [Unknown]
  - Pulmonary hypertension [Fatal]
  - Renal failure [Fatal]
  - Right ventricular failure [Fatal]
  - Urinary tract infection [Not Recovered/Not Resolved]
  - Anaemia [Not Recovered/Not Resolved]
